FAERS Safety Report 11400740 (Version 2)
Quarter: 2015Q4

REPORT INFORMATION
  Report Type: Spontaneous
  Country: GB (occurrence: GB)
  Receive Date: 20150820
  Receipt Date: 20151002
  Transmission Date: 20160304
  Serious: Yes (Life-Threatening, Disabling, Other)
  Sender: FDA-Public Use
  Company Number: GB-TEVA-585584ACC

PATIENT
  Age: 21 Year
  Sex: Female
  Weight: 60.77 kg

DRUGS (3)
  1. CITALOPRAM [Suspect]
     Active Substance: CITALOPRAM HYDROBROMIDE
     Indication: DEPRESSION
     Route: 048
  2. CITALOPRAM [Suspect]
     Active Substance: CITALOPRAM HYDROBROMIDE
     Indication: DEPRESSION
     Route: 048
  3. CITALOPRAM [Suspect]
     Active Substance: CITALOPRAM HYDROBROMIDE
     Indication: DEPRESSION
     Route: 048

REACTIONS (15)
  - Euphoric mood [Recovered/Resolved]
  - Suicidal ideation [Recovered/Resolved with Sequelae]
  - Sexual dysfunction [Recovered/Resolved]
  - Self injurious behaviour [Recovered/Resolved with Sequelae]
  - Dyskinesia [Not Recovered/Not Resolved]
  - Flat affect [Not Recovered/Not Resolved]
  - Apathy [Not Recovered/Not Resolved]
  - Antisocial behaviour [Recovered/Resolved]
  - Substance use [Recovered/Resolved with Sequelae]
  - Mood swings [Recovered/Resolved with Sequelae]
  - Anorgasmia [Not Recovered/Not Resolved]
  - Gastrointestinal disorder [Recovered/Resolved]
  - Abnormal dreams [Recovered/Resolved]
  - Somnolence [Unknown]
  - Feeling abnormal [Recovered/Resolved]
